FAERS Safety Report 15707330 (Version 5)
Quarter: 2021Q1

REPORT INFORMATION
  Report Type: Report from Study
  Country: None (occurrence: JP)
  Receive Date: 20181211
  Receipt Date: 20210309
  Transmission Date: 20210419
  Serious: Yes (Hospitalization)
  Sender: FDA-Public Use
  Company Number: JP-ABBVIE-17P-087-1886465-00

PATIENT
  Age: 47 Year
  Sex: Male
  Weight: 61 kg

DRUGS (32)
  1. DUODOPA [Suspect]
     Active Substance: CARBIDOPA\LEVODOPA
     Dosage: MD: 9 ML, CD: 3.3 ML/HR X 16 HR, ED: 2.2 ML/UNIT X3
     Route: 050
     Dates: start: 20170404, end: 20170626
  2. TIZANIDINE HYDROCHLORIDE. [Concomitant]
     Active Substance: TIZANIDINE HYDROCHLORIDE
     Dates: start: 20161227, end: 20161230
  3. ROTIGOTINE [Concomitant]
     Active Substance: ROTIGOTINE
     Indication: PRODUCT USED FOR UNKNOWN INDICATION
     Dates: start: 20161206, end: 20170502
  4. KN NO.3 [Concomitant]
     Active Substance: DEXTROSE\POTASSIUM CHLORIDE\SODIUM CHLORIDE\SODIUM LACTATE
     Indication: PROPHYLAXIS
     Route: 042
     Dates: start: 20180829, end: 20180829
  5. DUODOPA [Suspect]
     Active Substance: CARBIDOPA\LEVODOPA
     Dosage: MD: 4 ML, CD: 3.3 ML/HR X 16 HR
     Route: 050
     Dates: start: 20161121, end: 20161121
  6. DUODOPA [Suspect]
     Active Substance: CARBIDOPA\LEVODOPA
     Dosage: MD: 9 ML, CD: 3.1 ML/HR X 16 HR
     Route: 050
     Dates: start: 20161129, end: 20161130
  7. DUODOPA [Suspect]
     Active Substance: CARBIDOPA\LEVODOPA
     Dosage: MD: 9 ML, CD: 2.8 ML/HR X 16 HR, ED: 1 ML/UNIT X 4
     Route: 050
     Dates: start: 20161130, end: 20161227
  8. DUODOPA [Suspect]
     Active Substance: CARBIDOPA\LEVODOPA
     Dosage: MD: 9 ML, CD: 3.3 ML/HR X 16 HR, ED: 2 ML/UNIT X3
     Route: 050
     Dates: start: 20170110, end: 20170404
  9. DUODOPA [Suspect]
     Active Substance: CARBIDOPA\LEVODOPA
     Dosage: MD: 9 ML, CD: 3.1 ML/HR X 16 HR, ED: 2.2 ML/UNIT X 3
     Route: 050
     Dates: start: 20170626, end: 20180108
  10. HARTMANN^S SOLUTION [Concomitant]
     Active Substance: CALCIUM CHLORIDE\POTASSIUM CHLORIDE\SODIUM CHLORIDE\SODIUM LACTATE
     Indication: PROPHYLAXIS
     Route: 042
     Dates: start: 20180828, end: 20180830
  11. DUODOPA [Suspect]
     Active Substance: CARBIDOPA\LEVODOPA
     Dosage: MD: 5 ML, CD: 3.3 ML/HR X 16 HR
     Route: 050
     Dates: start: 20161122, end: 20161124
  12. DUODOPA [Suspect]
     Active Substance: CARBIDOPA\LEVODOPA
     Dosage: MD: 9 ML, CD: 3.2 ML/HR X 16 HR, ED: 2.2 ML/UNIT X 2
     Route: 050
     Dates: start: 20180109, end: 20180703
  13. DIAZEPAM. [Concomitant]
     Active Substance: DIAZEPAM
     Route: 048
     Dates: start: 20180814
  14. ENTACAPONE. [Concomitant]
     Active Substance: ENTACAPONE
     Indication: VITAMIN B6 DEFICIENCY
     Route: 048
     Dates: start: 20180704
  15. DUODOPA [Suspect]
     Active Substance: CARBIDOPA\LEVODOPA
     Dosage: MD: 4 ML, CD: 2.7 ML/HR X 16 HR
     Route: 050
     Dates: start: 20161117, end: 20161118
  16. DUODOPA [Suspect]
     Active Substance: CARBIDOPA\LEVODOPA
     Dosage: MD: 9.3 ML, CD: 3.2 ML/HR X 16 HRS, ED: 2.2 ML/UNIT X 2 TIMES
     Route: 050
     Dates: start: 20180703, end: 20180829
  17. TIZANIDINE HYDROCHLORIDE. [Concomitant]
     Active Substance: TIZANIDINE HYDROCHLORIDE
     Indication: PRODUCT USED FOR UNKNOWN INDICATION
     Route: 048
     Dates: end: 20161226
  18. DIAZEPAM. [Concomitant]
     Active Substance: DIAZEPAM
     Indication: PRODUCT USED FOR UNKNOWN INDICATION
     Route: 048
     Dates: end: 20170110
  19. ROTIGOTINE [Concomitant]
     Active Substance: ROTIGOTINE
     Route: 065
     Dates: start: 20170502, end: 20180703
  20. DUODOPA [Suspect]
     Active Substance: CARBIDOPA\LEVODOPA
     Dosage: MD: 4 ML, CD: 3.1 ML/HR X 16 HR
     Route: 050
     Dates: start: 20161118, end: 20161120
  21. LUBIPROSTONE [Concomitant]
     Active Substance: LUBIPROSTONE
     Indication: PRODUCT USED FOR UNKNOWN INDICATION
     Route: 065
     Dates: start: 20170207, end: 20170403
  22. PYRIDOXAL PHOSPHATE HYDRATE [Concomitant]
     Indication: VITAMIN B6 DEFICIENCY
     Route: 048
     Dates: start: 20180704
  23. DUODOPA [Suspect]
     Active Substance: CARBIDOPA\LEVODOPA
     Indication: PARKINSON^S DISEASE
     Dosage: MD: 9 ML, CD: 2.5 ML/HR X 16 HR
     Route: 050
     Dates: start: 20161117, end: 20161117
  24. DUODOPA [Suspect]
     Active Substance: CARBIDOPA\LEVODOPA
     Dosage: MD: 9 ML, CD: 3.0 ML/HR X 16 HR
     Route: 050
     Dates: start: 20161130, end: 20161130
  25. DUODOPA [Suspect]
     Active Substance: CARBIDOPA\LEVODOPA
     Dosage: MD: 9 ML, CD: 3.1 ML/HR X 16 HR, ED: 2 ML/UNIT X 2
     Route: 050
     Dates: start: 20161227, end: 20170110
  26. DUODOPA [Suspect]
     Active Substance: CARBIDOPA\LEVODOPA
     Dosage: MD: 9.3 ML, CD: 3.0 ML/HR X 16 HRS, ED: 2.5 ML/UNIT X 2 TIMES
     Route: 050
     Dates: start: 20180829, end: 20181001
  27. DIAZEPAM. [Concomitant]
     Active Substance: DIAZEPAM
     Route: 048
     Dates: start: 20170111, end: 20180814
  28. BFLUID [Concomitant]
     Active Substance: AMINO ACIDS\DEXTROSE\ELECTROLYTES NOS\VITAMINS
     Indication: PROPHYLAXIS
     Route: 042
     Dates: start: 20180828, end: 20180830
  29. DUODOPA [Suspect]
     Active Substance: CARBIDOPA\LEVODOPA
     Dosage: MD: 8.5 ML, CD: 3.3 ML/HR X 16 HR
     Route: 050
     Dates: start: 20161124, end: 20161129
  30. DUODOPA [Suspect]
     Active Substance: CARBIDOPA\LEVODOPA
     Dosage: MD: 9.3 ML, CD: 2.5 ML/HR X 16 HRS, ED: 2.5 ML/UNIT X 2 TIMES
     Route: 050
     Dates: start: 20181001
  31. TIZANIDINE HYDROCHLORIDE. [Concomitant]
     Active Substance: TIZANIDINE HYDROCHLORIDE
     Dates: start: 20161231, end: 20170102
  32. ROTIGOTINE [Concomitant]
     Active Substance: ROTIGOTINE
     Route: 062
     Dates: start: 20180704

REACTIONS (13)
  - Device kink [Recovered/Resolved]
  - Device occlusion [Recovered/Resolved]
  - Bezoar [Recovered/Resolved]
  - Dyskinesia [Not Recovered/Not Resolved]
  - Middle insomnia [Recovering/Resolving]
  - Dyskinesia [Recovered/Resolved]
  - Device dislocation [Unknown]
  - Small intestine ulcer [Unknown]
  - Bezoar [Recovered/Resolved]
  - Dyskinesia [Recovering/Resolving]
  - Small intestinal perforation [Recovered/Resolved]
  - Device issue [Unknown]
  - Retching [Recovered/Resolved]

NARRATIVE: CASE EVENT DATE: 20161117
